FAERS Safety Report 5827972-2 (Version None)
Quarter: 2008Q3

REPORT INFORMATION
  Report Type: 
  Country: None (occurrence: None)
  Receive Date: 20080729
  Receipt Date: 20080721
  Transmission Date: 20090109
  Serious: Yes (Other)
  Sender: FDA-Public Use
  Company Number: 027632

PATIENT
  Age: 19 Year
  Sex: Female

DRUGS (3)
  1. PLAN B [Suspect]
     Indication: CONTRACEPTION
     Dosage: TABLET, ORAL; TABLET, ORAL
     Route: 048
     Dates: start: 20080201, end: 20080201
  2. PLAN B [Suspect]
     Indication: CONTRACEPTION
     Dosage: TABLET, ORAL; TABLET, ORAL
     Route: 048
     Dates: start: 20080503, end: 20080503
  3. PRENATAL VITAMINS (ASCORBIC ACID, MINERALS NOS, VITAMIN B NOS, RETINOL [Concomitant]

REACTIONS (4)
  - ABORTION SPONTANEOUS [None]
  - DRUG EXPOSURE DURING PREGNANCY [None]
  - HIGH RISK SEXUAL BEHAVIOUR [None]
  - NAUSEA [None]
